FAERS Safety Report 7762576-6 (Version None)
Quarter: 2011Q3

REPORT INFORMATION
  Report Type: 
  Country: None (occurrence: None)
  Receive Date: 20110920
  Receipt Date: 20110916
  Transmission Date: 20111222
  Serious: Yes (Hospitalization)
  Sender: FDA-Public Use
  Company Number: US-GLAXOSMITHKLINE-A0841711A

PATIENT
  Age: 66 Year
  Sex: Male
  Weight: 100 kg

DRUGS (7)
  1. AVANDIA [Suspect]
     Indication: DIABETES MELLITUS
     Route: 048
     Dates: start: 20000103, end: 20071201
  2. PEPCID [Concomitant]
  3. LOPRESSOR [Concomitant]
  4. SIMVASTATIN [Concomitant]
  5. INSULIN [Concomitant]
  6. ALTACE [Concomitant]
  7. XANAX [Concomitant]

REACTIONS (5)
  - CORONARY ARTERY DISEASE [None]
  - ACUTE MYOCARDIAL INFARCTION [None]
  - CELLULITIS [None]
  - ARTERIOSCLEROSIS [None]
  - PULMONARY EMBOLISM [None]
